FAERS Safety Report 4740004-2 (Version None)
Quarter: 2005Q3

REPORT INFORMATION
  Report Type: 
  Country: None (occurrence: None)
  Receive Date: 20050729
  Receipt Date: 20050331
  Transmission Date: 20060218
  Serious: Yes (Other)
  Sender: FDA-Public Use
  Company Number: 2005S1001750

PATIENT
  Age: 71 Year
  Sex: Female

DRUGS (6)
  1. APOMORPHINE HYDROCHLORIDE (APOMORPHINE HYDROCHLORIDE) (10 MG/ML) [Suspect]
     Indication: PARKINSON'S DISEASE
     Dosage: 1.50 MG/HR;SC
     Dates: start: 20050301
  2. APOMORPHINE HYDROCHLORIDE (APOMORPHINE HYDROCHLORIDE) [Suspect]
     Dosage: 2 MG/HR;SC
  3. APOMORPHINE HYDROCHLORIDE (APOMORPHINE HYDROCHLORIDE) [Suspect]
     Dosage: 1.50 MG/HR;SC
     Dates: end: 20050318
  4. CARBIDOPA AND LEVODOPA [Concomitant]
  5. PRAMIPEXOLE [Concomitant]
  6. SELEGILINE HCL [Concomitant]

REACTIONS (9)
  - ANXIETY [None]
  - ASTHENIA [None]
  - BALANCE DISORDER [None]
  - DIZZINESS [None]
  - DYSPNOEA [None]
  - HEADACHE [None]
  - MOBILITY DECREASED [None]
  - NAUSEA [None]
  - OEDEMA PERIPHERAL [None]
